FAERS Safety Report 4944628-9 (Version None)
Quarter: 2006Q1

REPORT INFORMATION
  Report Type: 
  Country: None (occurrence: None)
  Receive Date: 20060315
  Receipt Date: 20060301
  Transmission Date: 20060701
  Serious: Yes (Other)
  Sender: FDA-Public Use
  Company Number: GB-GLAXOSMITHKLINE-B0414028A

PATIENT

DRUGS (1)
  1. NIQUITIN CQ [Suspect]

REACTIONS (1)
  - BLINDNESS [None]
